FAERS Safety Report 7752683-6 (Version None)
Quarter: 2011Q3

REPORT INFORMATION
  Report Type: 
  Country: None (occurrence: None)
  Receive Date: 20110915
  Receipt Date: 20110911
  Transmission Date: 20111222
  Serious: Yes (Death)
  Sender: FDA-Public Use
  Company Number: EG-PFIZER INC-2011183858

PATIENT
  Age: 3 Year
  Sex: Male

DRUGS (8)
  1. VANCOMYCIN [Concomitant]
     Indication: PROPHYLAXIS
     Dosage: 250 MG, 4X/DAY
     Route: 042
  2. VFEND [Concomitant]
     Indication: FUNGAEMIA
     Dosage: 200 MG, 2X/DAY
     Route: 042
     Dates: start: 20110801
  3. PIPERACILLIN AND TAZOBACTAM [Concomitant]
     Indication: PNEUMONIA
     Dosage: 2 G, 4X/DAY
     Route: 042
     Dates: start: 20110722, end: 20110805
  4. MEROPENEM [Concomitant]
     Dosage: 300 MG, 4X/DAY
  5. ZYVOX [Suspect]
     Indication: NOSOCOMIAL INFECTION
     Dosage: 10
     Route: 042
     Dates: start: 20110804
  6. AMIKIN [Concomitant]
     Indication: PROPHYLAXIS
     Dosage: 300 MG, 2X/DAY
     Route: 042
  7. AMBISOME [Concomitant]
     Dosage: UNK
  8. ZITHROMAX [Concomitant]
     Indication: PROPHYLAXIS
     Dosage: 200 MG, 1X/DAY
     Route: 048

REACTIONS (2)
  - LOWER RESPIRATORY TRACT INFECTION [None]
  - PRODUCT PACKAGING QUANTITY ISSUE [None]
